FAERS Safety Report 8399636 (Version 2)
Quarter: 2013Q2

REPORT INFORMATION
  Report Type: Spontaneous
  Country: US (occurrence: None)
  Receive Date: 20111227
  Receipt Date: 20120426
  Transmission Date: 20140414
  Serious: Yes (Hospitalization, Other)
  Sender: FDA-Public Use
  Company Number: PHEH2011US05718

PATIENT
  Age: 44 Year
  Sex: Male

DRUGS (1)
  1. GILENYA [Suspect]
     Indication: RELAPSING-REMITTING MULTIPLE SCLEROSIS
     Dosage: 0.5 MG, QD, ORAL
     Route: 048
     Dates: start: 20110426, end: 20110929

REACTIONS (9)
  - ABSCESS [None]
  - STAPHYLOCOCCAL INFECTION [None]
  - INFECTION [None]
  - MUSCULOSKELETAL PAIN [None]
  - ERYTHEMA [None]
  - PYREXIA [None]
  - PAIN [None]
  - RASH PUSTULAR [None]
  - OEDEMA PERIPHERAL [None]
